FAERS Safety Report 9683460 (Version 1)
Quarter: 2013Q4

REPORT INFORMATION
  Report Type: Report from Study
  Country: SI (occurrence: SI)
  Receive Date: 20131112
  Receipt Date: 20131112
  Transmission Date: 20140711
  Serious: Yes (Other)
  Sender: FDA-Public Use
  Company Number: SI-INCYTE CORPORATION-2013IN002596

PATIENT
  Age: 36 Year
  Sex: Female
  Weight: 60 kg

DRUGS (1)
  1. INC424 [Suspect]
     Dosage: 15 MG, BID
     Route: 048
     Dates: start: 20120510, end: 20130919

REACTIONS (1)
  - Carbohydrate antigen 125 increased [Not Recovered/Not Resolved]
